FAERS Safety Report 7817901-4 (Version None)
Quarter: 2011Q4

REPORT INFORMATION
  Report Type: 
  Country: None (occurrence: None)
  Receive Date: 20111017
  Receipt Date: 20111007
  Transmission Date: 20120403
  Serious: Yes (Other)
  Sender: FDA-Public Use
  Company Number: PHHY2011GB88521

PATIENT
  Age: 65 Year
  Sex: Male

DRUGS (4)
  1. TACROLIMUS [Suspect]
     Indication: IMMUNOSUPPRESSION
  2. AMOXICILLIN AND CLAVULANATE POTASSIUM [Concomitant]
  3. PREDNISOLONE [Suspect]
     Indication: IMMUNOSUPPRESSION
  4. MYCOPHENOLATE MOFETIL [Suspect]
     Indication: IMMUNOSUPPRESSION

REACTIONS (9)
  - EPISTAXIS [None]
  - RHINITIS [None]
  - PAIN [None]
  - SINUSITIS [None]
  - FACIAL PAIN [None]
  - EYE SWELLING [None]
  - CONJUNCTIVAL DISORDER [None]
  - EYE ABSCESS [None]
  - VISION BLURRED [None]
